FAERS Safety Report 25817214 (Version 1)
Quarter: 2025Q3

REPORT INFORMATION
  Report Type: Spontaneous
  Country: EU (occurrence: EU)
  Receive Date: 20250918
  Receipt Date: 20250918
  Transmission Date: 20251021
  Serious: Yes (Life-Threatening)
  Sender: AUROBINDO
  Company Number: EU-URPL-DML-MLP.4401.1.668.2022

PATIENT
  Age: 38 Year
  Sex: Female
  Weight: 50 kg

DRUGS (1)
  1. ACETAMINOPHEN [Suspect]
     Active Substance: ACETAMINOPHEN
     Indication: Product used for unknown indication
     Route: 065
     Dates: start: 20220116

REACTIONS (4)
  - Somnolence [Recovered/Resolved]
  - Psychomotor skills impaired [Recovered/Resolved]
  - Confusional state [Recovered/Resolved]
  - Depressed mood [Recovered/Resolved]

NARRATIVE: CASE EVENT DATE: 20220117
